FAERS Safety Report 24392479 (Version 1)
Quarter: 2024Q4

REPORT INFORMATION
  Report Type: Report from Study
  Country: IT (occurrence: IT)
  Receive Date: 20241003
  Receipt Date: 20241003
  Transmission Date: 20250115
  Serious: Yes (Hospitalization, Other)
  Sender: ALEXION PHARMACEUTICALS
  Company Number: IT-AstraZeneca-2024A213416

PATIENT

DRUGS (1)
  1. DURVALUMAB [Suspect]
     Active Substance: DURVALUMAB
     Indication: Non-small cell lung cancer

REACTIONS (6)
  - Balance disorder [Unknown]
  - Urinary incontinence [Unknown]
  - Febrile neutropenia [Unknown]
  - Pyrexia [Unknown]
  - Hypoxia [Unknown]
  - Micrococcus infection [Unknown]
